FAERS Safety Report 7715099-4 (Version None)
Quarter: 2011Q3

REPORT INFORMATION
  Report Type: 
  Country: None (occurrence: None)
  Receive Date: 20110829
  Receipt Date: 20110818
  Transmission Date: 20111222
  Serious: Yes (Other)
  Sender: FDA-Public Use
  Company Number: PHEH2010US03503

PATIENT
  Sex: Female
  Weight: 88.889 kg

DRUGS (20)
  1. OXYCODONE HCL [Concomitant]
  2. MORPHINE [Concomitant]
  3. NORVASC [Concomitant]
     Dosage: 10 MG, QD
  4. ONDASETRON [Concomitant]
  5. METOCLOPRAMIDE [Concomitant]
  6. WARFARIN SODIUM [Concomitant]
  7. DEXAMETHASONE [Concomitant]
  8. DECADRON [Suspect]
     Dosage: 4 MG, BID
  9. MULTI-VITAMIN [Concomitant]
  10. ZOMETA [Suspect]
     Indication: OSTEOARTHRITIS
  11. BENICAR [Concomitant]
     Dosage: 20 MG, QD
  12. NOVOLOG [Concomitant]
  13. FUROSEMIDE [Concomitant]
  14. DECADRON [Suspect]
     Dosage: 4 MG, TID
  15. HYDROCHLOROTHIAZIDE [Concomitant]
     Dosage: 25 MG, QD
     Route: 048
  16. DILAUDID [Concomitant]
  17. METOPROLOL TARTRATE [Concomitant]
  18. REVLIMID [Concomitant]
  19. IMIPENEM [Concomitant]
  20. HEPARIN [Concomitant]

REACTIONS (51)
  - LIFE EXPECTANCY SHORTENED [None]
  - PRURITUS [None]
  - PANCYTOPENIA [None]
  - FEMUR FRACTURE [None]
  - DEEP VEIN THROMBOSIS [None]
  - CHEST WALL ABSCESS [None]
  - COMPRESSION FRACTURE [None]
  - TOOTH AVULSION [None]
  - COAGULOPATHY [None]
  - NECROTISING FASCIITIS [None]
  - PAIN [None]
  - DYSPHAGIA [None]
  - PROTEINURIA [None]
  - NEOPLASM PROGRESSION [None]
  - SINUS BRADYCARDIA [None]
  - OEDEMA [None]
  - PHARYNGEAL ABSCESS [None]
  - ATELECTASIS [None]
  - EMOTIONAL DISTRESS [None]
  - ANXIETY [None]
  - QUALITY OF LIFE DECREASED [None]
  - METASTASES TO BONE [None]
  - NEOPLASM MALIGNANT [None]
  - CARDIOMEGALY [None]
  - HEPATITIS [None]
  - ABSCESS NECK [None]
  - CELLULITIS [None]
  - COLONIC POLYP [None]
  - NEPHROLITHIASIS [None]
  - PATHOLOGICAL FRACTURE [None]
  - ANAEMIA [None]
  - OSTEOMYELITIS [None]
  - CARDIAC FAILURE CONGESTIVE [None]
  - OSTEONECROSIS OF JAW [None]
  - COLON CANCER [None]
  - INTERVERTEBRAL DISC PROTRUSION [None]
  - RENAL FAILURE CHRONIC [None]
  - ABSCESS JAW [None]
  - OVERDOSE [None]
  - DEFORMITY [None]
  - INJURY [None]
  - DYSPHONIA [None]
  - DISCOMFORT [None]
  - BONE PAIN [None]
  - NECK PAIN [None]
  - INTERVERTEBRAL DISC DEGENERATION [None]
  - DYSPNOEA EXERTIONAL [None]
  - RESPIRATORY FAILURE [None]
  - HYPOTENSION [None]
  - RENAL FAILURE ACUTE [None]
  - HYPERGLYCAEMIA [None]
